FAERS Safety Report 7417452-5 (Version None)
Quarter: 2011Q2

REPORT INFORMATION
  Report Type: 
  Country: None (occurrence: None)
  Receive Date: 20110412
  Receipt Date: 20110412
  Transmission Date: 20111010
  Serious: No
  Sender: FDA-Public Use
  Company Number: None

PATIENT
  Sex: Female
  Weight: 63.5036 kg

DRUGS (1)
  1. MEDROXYPROGESTERONE [Suspect]
     Indication: CONTRACEPTION
     Dosage: 150MG 4X YEAR
     Dates: start: 19990501, end: 20110201

REACTIONS (3)
  - IMPAIRED HEALING [None]
  - OSTEOMALACIA [None]
  - FOOT FRACTURE [None]
